FAERS Safety Report 9873924 (Version 2)
Quarter: 2014Q1

REPORT INFORMATION
  Report Type: Other
  Country: US (occurrence: US)
  Receive Date: 20140206
  Receipt Date: 20140206
  Transmission Date: 20141002
  Serious: Yes (Hospitalization)
  Sender: FDA-Public Use
  Company Number: US-ACORDA-ACO_34272_2013

PATIENT
  Age: 68 Year
  Sex: Male
  Weight: 58.96 kg

DRUGS (4)
  1. AMPYRA [Suspect]
     Indication: GAIT DISTURBANCE
     Dosage: 10 MG, BID
     Route: 048
     Dates: start: 201210
  2. AMPYRA [Suspect]
     Indication: MULTIPLE SCLEROSIS
  3. IBUPROFEN [Concomitant]
     Indication: PRODUCT USED FOR UNKNOWN INDICATION
     Dosage: UNK
  4. GILENYA [Concomitant]
     Indication: PRODUCT USED FOR UNKNOWN INDICATION
     Dosage: UNK

REACTIONS (9)
  - Multiple sclerosis relapse [Recovering/Resolving]
  - Gastrointestinal ulcer [Unknown]
  - Vomiting [Recovered/Resolved]
  - Stress [Unknown]
  - Fatigue [Unknown]
  - Depression [Unknown]
  - Dysstasia [Not Recovered/Not Resolved]
  - Movement disorder [Not Recovered/Not Resolved]
  - Drug dose omission [Unknown]
